FAERS Safety Report 13211455 (Version 1)
Quarter: 2017Q1

REPORT INFORMATION
  Report Type: Spontaneous
  Country: US (occurrence: US)
  Receive Date: 20170209
  Receipt Date: 20170209
  Transmission Date: 20170428
  Serious: No
  Sender: FDA-Public Use
  Company Number: US-ALLERGAN-1662900US

PATIENT
  Age: 35 Year
  Sex: Female
  Weight: 63.49 kg

DRUGS (3)
  1. ORTHO TRI CYCLEN LO [Concomitant]
     Active Substance: ETHINYL ESTRADIOL\NORGESTIMATE
     Indication: ORAL CONTRACEPTION
     Dosage: 0.18MG/0.25MG DAILY
     Route: 048
  2. ZENATANE [Concomitant]
     Active Substance: ISOTRETINOIN
     Indication: ACNE
     Dosage: 40 MG, BID
     Route: 048
  3. BOTOX COSMETIC [Suspect]
     Active Substance: ONABOTULINUMTOXINA
     Indication: SKIN WRINKLING
     Dosage: 16 UNITS, SINGLE
     Route: 030
     Dates: start: 20160620, end: 20160620

REACTIONS (2)
  - Product preparation error [Unknown]
  - Injection site pain [Recovered/Resolved]

NARRATIVE: CASE EVENT DATE: 20160620
